FAERS Safety Report 8809128 (Version 2)
Quarter: 2012Q4

REPORT INFORMATION
  Report Type: 
  Country: FR (occurrence: FR)
  Receive Date: 20120926
  Receipt Date: 20121024
  Transmission Date: 20130627
  Serious: Yes (Hospitalization, Other)
  Sender: FDA-Public Use
  Company Number: FR-PFIZER INC-2012235666

PATIENT
  Age: 78 Year
  Sex: Male

DRUGS (4)
  1. LYRICA [Suspect]
     Dosage: 600 mg, single
     Route: 048
     Dates: start: 20110923, end: 20110923
  2. LAROXYL [Suspect]
     Dosage: 35 Gtt, single
     Route: 048
     Dates: start: 20110923, end: 20110923
  3. NOCTAMIDE [Suspect]
     Dosage: 2 mg, single intake before bed
     Route: 048
     Dates: start: 20110923, end: 20110923
  4. OXYCONTIN [Suspect]
     Dosage: 90 mg, single
     Route: 048
     Dates: start: 20110923, end: 20110923

REACTIONS (2)
  - Confusional state [Recovered/Resolved]
  - Hemiparesis [Unknown]
